FAERS Safety Report 23295902 (Version 1)
Quarter: 2023Q4

REPORT INFORMATION
  Report Type: Other
  Country: US (occurrence: None)
  Receive Date: 20231214
  Receipt Date: 20231214
  Transmission Date: 20240110
  Serious: Yes (Other)
  Sender: FDA-Public Use
  Company Number: US-ROCHE-3472774

PATIENT
  Age: 47 Year
  Sex: Female

DRUGS (30)
  1. RITUXAN [Suspect]
     Active Substance: RITUXIMAB
     Indication: Systemic lupus erythematosus
     Dosage: THEN EVERY 6 MONTHS
     Route: 041
  2. CELLCEPT [Suspect]
     Active Substance: MYCOPHENOLATE MOFETIL
     Indication: Product used for unknown indication
     Route: 065
  3. PREDNISONE [Concomitant]
     Active Substance: PREDNISONE
  4. BUPROPION HYDROCHLORIDE XL [Concomitant]
     Active Substance: BUPROPION HYDROCHLORIDE
  5. CIPROFLOXACIN [Concomitant]
     Active Substance: CIPROFLOXACIN
  6. DICYCLOMINE [Concomitant]
     Active Substance: DICYCLOMINE HYDROCHLORIDE
  7. METRONIDAZOLE [Concomitant]
     Active Substance: METRONIDAZOLE
  8. LORAZEPAM [Concomitant]
     Active Substance: LORAZEPAM
  9. MECLIZINE [Concomitant]
     Active Substance: MECLIZINE HYDROCHLORIDE
  10. ONDANSETRON [Concomitant]
     Active Substance: ONDANSETRON
  11. PANTOPRAZOLE [Concomitant]
     Active Substance: PANTOPRAZOLE
  12. DULOXETINE [Concomitant]
     Active Substance: DULOXETINE
  13. LEVOCARNITINE [Concomitant]
     Active Substance: LEVOCARNITINE
  14. FLUDROCORTISONE [Concomitant]
     Active Substance: FLUDROCORTISONE
  15. AMOXICILLIN\CLAVULANATE POTASSIUM [Concomitant]
     Active Substance: AMOXICILLIN\CLAVULANATE POTASSIUM
  16. DOXYCYCLINE [Concomitant]
     Active Substance: DOXYCYCLINE
  17. ACYCLOVIR [Concomitant]
     Active Substance: ACYCLOVIR
  18. MIDODRINE [Concomitant]
     Active Substance: MIDODRINE
  19. ONDANSETRON HYDROCHLORIDE [Concomitant]
     Active Substance: ONDANSETRON HYDROCHLORIDE
  20. TRAZODONE [Concomitant]
     Active Substance: TRAZODONE HYDROCHLORIDE
  21. GABAPENTIN [Concomitant]
     Active Substance: GABAPENTIN
  22. CLOPIDOGREL [Concomitant]
     Active Substance: CLOPIDOGREL BISULFATE
  23. ROSUVASTATIN [Concomitant]
     Active Substance: ROSUVASTATIN
  24. BUPROPION HYDROCHLORIDE [Concomitant]
     Active Substance: BUPROPION HYDROCHLORIDE
  25. SULFAMETHOXAZOLE [Concomitant]
     Active Substance: SULFAMETHOXAZOLE
  26. ALBUTEROL SULFATE [Concomitant]
     Active Substance: ALBUTEROL SULFATE
  27. ACETAMINOPHEN [Concomitant]
     Active Substance: ACETAMINOPHEN
  28. ALLEGRA ALLERGY [Concomitant]
     Active Substance: FEXOFENADINE HYDROCHLORIDE
  29. BENLYSTA [Concomitant]
     Active Substance: BELIMUMAB
  30. HYDROXYCHLOROQUINE [Concomitant]
     Active Substance: HYDROXYCHLOROQUINE

REACTIONS (16)
  - Deafness unilateral [Unknown]
  - Pneumonia [Unknown]
  - Off label use [Unknown]
  - Dyspnoea [Unknown]
  - Chest pain [Unknown]
  - COVID-19 [Unknown]
  - White blood cell count increased [Unknown]
  - Rash [Unknown]
  - Cognitive disorder [Unknown]
  - Neck pain [Unknown]
  - Migraine [Unknown]
  - Fatigue [Unknown]
  - Vitamin D deficiency [Unknown]
  - Adrenal insufficiency [Unknown]
  - Paraesthesia [Unknown]
  - Thyroid disorder [Unknown]
